FAERS Safety Report 13381781 (Version 1)
Quarter: 2017Q1

REPORT INFORMATION
  Report Type: Spontaneous
  Country: US (occurrence: US)
  Receive Date: 20170329
  Receipt Date: 20170329
  Transmission Date: 20170429
  Serious: No
  Sender: FDA-Public Use
  Company Number: None

PATIENT
  Age: 58 Year
  Sex: Female
  Weight: 61.24 kg

DRUGS (2)
  1. ZOLPIDEM TARTRATE 10MG TAB [Suspect]
     Active Substance: ZOLPIDEM TARTRATE
     Indication: INSOMNIA
     Dosage: 1 THAT I REMEMBER PRESCRIPTION WAS FOR 1 NIGHT AS NEEDED ORAL
     Route: 048
     Dates: start: 201510, end: 20160303
  2. COMBIPATCH [Concomitant]
     Active Substance: ESTRADIOL\NORETHINDRONE ACETATE

REACTIONS (4)
  - Somnambulism [None]
  - Imprisonment [None]
  - Incorrect dose administered [None]
  - Amnesia [None]

NARRATIVE: CASE EVENT DATE: 20160307
